FAERS Safety Report 26157586 (Version 1)
Quarter: 2025Q4

REPORT INFORMATION
  Report Type: Spontaneous
  Country: US (occurrence: None)
  Receive Date: 20251212
  Receipt Date: 20251212
  Transmission Date: 20260117
  Serious: No
  Sender: FDA-CTU
  Company Number: None

PATIENT
  Age: 31 Year
  Sex: Female

DRUGS (1)
  1. CONTRAVE [Suspect]
     Active Substance: BUPROPION HYDROCHLORIDE\NALTREXONE HYDROCHLORIDE

REACTIONS (6)
  - Feeling abnormal [None]
  - Impaired driving ability [None]
  - Dizziness [None]
  - Vision blurred [None]
  - Brain fog [None]
  - Pancreatitis [None]

NARRATIVE: CASE EVENT DATE: 20251212
